FAERS Safety Report 7134036-7 (Version None)
Quarter: 2010Q4

REPORT INFORMATION
  Report Type: 
  Country: None (occurrence: None)
  Receive Date: 20101203
  Receipt Date: 20101125
  Transmission Date: 20110411
  Serious: Yes (Other)
  Sender: FDA-Public Use
  Company Number: ZA-BRISTOL-MYERS SQUIBB COMPANY-15410194

PATIENT
  Age: 9 Month
  Sex: Female

DRUGS (6)
  1. EFAVIRENZ ORAL SOLN [Suspect]
     Indication: HIV INFECTION
     Dosage: NO OF COURSE:4
     Route: 048
     Dates: start: 20100803
  2. DIDANOSINE [Suspect]
     Indication: HIV INFECTION
     Dosage: NO OF COURSE:4
     Route: 048
     Dates: start: 20100803
  3. EMTRICITABINE [Suspect]
     Indication: HIV INFECTION
     Dosage: NO OF COURSE:4
     Route: 048
     Dates: start: 20100803
  4. AMOXICILLIN [Concomitant]
     Dates: start: 20101120
  5. PARACETAMOL [Concomitant]
     Dates: start: 20101120
  6. NORMAL SALINE [Concomitant]
     Dosage: NORMAL SALINE NOSE DROPS
     Route: 045
     Dates: start: 20101120

REACTIONS (1)
  - NEUTROPENIA [None]
